FAERS Safety Report 5553340-7 (Version None)
Quarter: 2007Q4

REPORT INFORMATION
  Report Type: 
  Country: None (occurrence: None)
  Receive Date: 20071211
  Receipt Date: 20071211
  Transmission Date: 20080405
  Serious: No
  Sender: FDA-Public Use
  Company Number: None

PATIENT
  Sex: Female

DRUGS (4)
  1. RYTHMOL SR [Suspect]
     Indication: ATRIAL FIBRILLATION
     Dosage: ONE BY MOUTH TWICE DAY
  2. DIGOXIN [Concomitant]
  3. TOPROL-XL [Concomitant]
  4. PROPAFENONE HCL [Concomitant]

REACTIONS (1)
  - ATRIAL FIBRILLATION [None]
